FAERS Safety Report 11987920 (Version 1)
Quarter: 2016Q1

REPORT INFORMATION
  Report Type: Spontaneous
  Country: NL (occurrence: NL)
  Receive Date: 20160202
  Receipt Date: 20160202
  Transmission Date: 20160526
  Serious: Yes (Death, Hospitalization)
  Sender: FDA-Public Use
  Company Number: NL-ACTELION-A-CH2016-130413

PATIENT
  Age: 44 Year
  Sex: Female
  Weight: 54 kg

DRUGS (2)
  1. SILDENAFIL. [Concomitant]
     Active Substance: SILDENAFIL
     Indication: PULMONARY ARTERIAL HYPERTENSION
     Dosage: 40 MG, TID
     Route: 048
     Dates: start: 2011
  2. OPSUMIT [Suspect]
     Active Substance: MACITENTAN
     Indication: PULMONARY ARTERIAL HYPERTENSION
     Dosage: 10 MG, OD
     Route: 048
     Dates: start: 201505, end: 20160121

REACTIONS (8)
  - Gouty arthritis [Unknown]
  - Procedural pneumothorax [Unknown]
  - Dizziness [Unknown]
  - Complication associated with device [Unknown]
  - Right ventricular failure [Fatal]
  - Hallucination [Unknown]
  - Bradyphrenia [Unknown]
  - Hypoxia [Unknown]

NARRATIVE: CASE EVENT DATE: 201601
